FAERS Safety Report 8488716 (Version 2)
Quarter: 2013Q1

REPORT INFORMATION
  Report Type: Spontaneous
  Country: US (occurrence: US)
  Receive Date: 20120402
  Receipt Date: 20130304
  Transmission Date: 20140127
  Serious: No
  Sender: FDA-Public Use
  Company Number: US-ABBOTT-11P-163-0843969-00

PATIENT
  Sex: Male
  Weight: 102.15 kg

DRUGS (8)
  1. ANDROGEL 1% [Suspect]
     Indication: HYPOGONADISM
     Dosage: TWO PUMPS ACTUATIONS DAILY
     Dates: start: 2010
  2. ANDROGEL 1% [Suspect]
     Dosage: FOUR PUMPS ACTUATIONS DAILY
     Dates: start: 2008, end: 2010
  3. GLUCOPHAGE [Concomitant]
     Indication: DIABETES MELLITUS
  4. MYCARDIS HCTZ [Concomitant]
     Indication: HYPERTENSION
     Dosage: TAKES TABLET: 80MG/12.5 MG
     Route: 048
  5. PRAVASTATIN [Concomitant]
     Indication: BLOOD CHOLESTEROL INCREASED
     Route: 048
  6. ASPIRIN [Concomitant]
     Indication: CARDIOVASCULAR EVENT PROPHYLAXIS
     Route: 048
  7. HYDROCHLOROTHIAZIDE [Concomitant]
     Indication: HYPERTENSION
  8. ZANTAC [Concomitant]
     Indication: PRODUCT USED FOR UNKNOWN INDICATION

REACTIONS (2)
  - Lethargy [Not Recovered/Not Resolved]
  - Blood testosterone decreased [Not Recovered/Not Resolved]
